FAERS Safety Report 5886355-X (Version None)
Quarter: 2008Q3

REPORT INFORMATION
  Report Type: 
  Country: None (occurrence: None)
  Receive Date: 20080917
  Receipt Date: 20080915
  Transmission Date: 20090109
  Serious: Yes (Other)
  Sender: FDA-Public Use
  Company Number: D0058651A

PATIENT
  Age: 54 Year
  Sex: Female
  Weight: 86 kg

DRUGS (6)
  1. ELONTRIL [Suspect]
     Indication: DEPRESSION
     Dosage: 300MG PER DAY
     Route: 048
     Dates: start: 20080724, end: 20080820
  2. LITHIUM CARBONATE [Suspect]
     Indication: DEPRESSION
     Dosage: 450MG PER DAY
     Route: 048
     Dates: start: 20080724, end: 20080820
  3. DOXEPIN HCL [Concomitant]
     Indication: SLEEP DISORDER
     Route: 048
  4. DIOVAN [Concomitant]
     Indication: HYPERTENSION
     Dosage: 80MG IN THE MORNING
     Route: 048
  5. LEVOTHYROXINE SODIUM [Concomitant]
     Dosage: 80MCG IN THE MORNING
     Route: 048
  6. PREDNISOLON [Concomitant]
     Dosage: 4MG UNKNOWN
     Route: 048

REACTIONS (2)
  - DRUG INTERACTION [None]
  - RENAL FAILURE ACUTE [None]
